FAERS Safety Report 17074039 (Version 2)
Quarter: 2019Q4

REPORT INFORMATION
  Report Type: Spontaneous
  Country: DE (occurrence: DE)
  Receive Date: 20191126
  Receipt Date: 20191204
  Transmission Date: 20200122
  Serious: No
  Sender: FDA-Public Use
  Company Number: DE-ROCHE-2459283

PATIENT
  Age: 32 Year
  Sex: Female

DRUGS (3)
  1. SOLU DECORTIN H [Concomitant]
     Active Substance: PREDNISOLONE SODIUM SUCCINATE
     Route: 042
     Dates: start: 20191014
  2. TAVEGIL [CLEMASTINE] [Concomitant]
     Active Substance: CLEMASTINE
     Route: 042
     Dates: start: 20191014
  3. OCREVUS [Suspect]
     Active Substance: OCRELIZUMAB
     Indication: MULTIPLE SCLEROSIS
     Route: 042
     Dates: start: 20191014

REACTIONS (1)
  - Oral herpes [Recovered/Resolved]

NARRATIVE: CASE EVENT DATE: 20191026
